FAERS Safety Report 7352149-1 (Version None)
Quarter: 2011Q1

REPORT INFORMATION
  Report Type: 
  Country: None (occurrence: None)
  Receive Date: 20110315
  Receipt Date: 20110301
  Transmission Date: 20110831
  Serious: Yes (Hospitalization, Other)
  Sender: FDA-Public Use
  Company Number: US-BAYER-201037632NA

PATIENT
  Sex: Female
  Weight: 59.41 kg

DRUGS (4)
  1. LORTAB [Concomitant]
     Dosage: UNK
     Dates: start: 20090714
  2. YAZ [Suspect]
     Indication: CONTRACEPTION
     Route: 048
     Dates: start: 20070201, end: 20090801
  3. YAZ [Suspect]
     Dosage: UNK, QD
     Dates: start: 20071213, end: 20090701
  4. SENNA [Concomitant]
     Dosage: UNK
     Dates: start: 20090714

REACTIONS (6)
  - CHEST PAIN [None]
  - CHOLECYSTITIS CHRONIC [None]
  - BILIARY DYSKINESIA [None]
  - GALLBLADDER DISORDER [None]
  - ABDOMINAL PAIN UPPER [None]
  - BOWEL MOVEMENT IRREGULARITY [None]
